FAERS Safety Report 10926834 (Version 3)
Quarter: 2015Q2

REPORT INFORMATION
  Report Type: Report from Study
  Country: TH (occurrence: TH)
  Receive Date: 20150318
  Receipt Date: 20150507
  Transmission Date: 20150821
  Serious: Yes (Hospitalization)
  Sender: FDA-Public Use
  Company Number: TH-ASTELLAS-2015US007445

PATIENT
  Age: 26 Year
  Sex: Female
  Weight: 48 kg

DRUGS (2)
  1. TACROLIMUS. [Suspect]
     Active Substance: TACROLIMUS
     Indication: LUPUS NEPHRITIS
     Dosage: 0.5 MG, ONCE DAILY
     Route: 048
     Dates: start: 20150217, end: 20150303
  2. TACROLIMUS. [Suspect]
     Active Substance: TACROLIMUS
     Route: 048
     Dates: start: 20150217, end: 20150303

REACTIONS (2)
  - Product use issue [Unknown]
  - Monarthritis [Recovered/Resolved]

NARRATIVE: CASE EVENT DATE: 20150224
